FAERS Safety Report 4537162-1 (Version None)
Quarter: 2004Q4

REPORT INFORMATION
  Report Type: 
  Country: None (occurrence: None)
  Receive Date: 20041223
  Receipt Date: 20041215
  Transmission Date: 20050328
  Serious: Yes (Other)
  Sender: FDA-Public Use
  Company Number: PHEH2004US13367

PATIENT
  Age: 70 Year
  Sex: Female

DRUGS (3)
  1. MIACALCIN [Suspect]
     Indication: OSTEOPOROSIS
     Dosage: 200 IU, QD
     Route: 045
     Dates: start: 20040301
  2. SYNTHROID [Concomitant]
  3. AROMASIN [Concomitant]

REACTIONS (2)
  - CHEST PAIN [None]
  - EXTRASYSTOLES [None]
